FAERS Safety Report 6374015-0 (Version None)
Quarter: 2009Q3

REPORT INFORMATION
  Report Type: 
  Country: None (occurrence: None)
  Receive Date: 20090924
  Receipt Date: 20090713
  Transmission Date: 20100115
  Serious: No
  Sender: FDA-Public Use
  Company Number: US-ASTRAZENECA-2009UW19496

PATIENT
  Age: 66 Year
  Sex: Female
  Weight: 63.5 kg

DRUGS (5)
  1. SEROQUEL XR [Suspect]
     Indication: ANXIETY
     Route: 048
     Dates: start: 20090701
  2. METOPROLOL TARTRATE [Concomitant]
     Indication: AORTIC VALVE INCOMPETENCE
  3. WELLBUTRIN [Concomitant]
     Indication: DEPRESSION
  4. TEMAZEPAM [Concomitant]
     Indication: SLEEP DISORDER
  5. SIMVASTATIN [Concomitant]
     Indication: AORTIC VALVE INCOMPETENCE

REACTIONS (3)
  - DIZZINESS [None]
  - FEELING ABNORMAL [None]
  - GAIT DISTURBANCE [None]
